FAERS Safety Report 21908018 (Version 2)
Quarter: 2023Q1

REPORT INFORMATION
  Report Type: Spontaneous
  Country: DE (occurrence: DE)
  Receive Date: 20230125
  Receipt Date: 20230211
  Transmission Date: 20230418
  Serious: Yes (Life-Threatening)
  Sender: FDA-Public Use
  Company Number: DE-TEVA-2023-DE-2848758

PATIENT
  Age: 55 Year
  Sex: Female

DRUGS (2)
  1. LORAZEPAM [Suspect]
     Active Substance: LORAZEPAM
     Indication: Catatonia
     Dosage: 7.5 MILLIGRAM DAILY; ONCE A DAY , FIRST-LINE THERAPY
     Route: 065
  2. ZOLPIDEM [Suspect]
     Active Substance: ZOLPIDEM TARTRATE
     Indication: Catatonia
     Dosage: 30 MILLIGRAM DAILY; ONCE A DAY , FIRST-LINE THERAPY
     Route: 065

REACTIONS (1)
  - Therapy non-responder [Unknown]
